FAERS Safety Report 4975763-7 (Version None)
Quarter: 2006Q2

REPORT INFORMATION
  Report Type: 
  Country: None (occurrence: None)
  Receive Date: 20060411
  Receipt Date: 20060403
  Transmission Date: 20061013
  Serious: Yes (Hospitalization, Other)
  Sender: FDA-Public Use
  Company Number: 2006047133

PATIENT
  Age: 32 Year
  Sex: Female

DRUGS (3)
  1. PREDNISOLONE [Suspect]
     Indication: HEART AND LUNG TRANSPLANT
  2. PROGRAF [Suspect]
     Indication: HEART AND LUNG TRANSPLANT
  3. MYCOPHENOLATE MOFETIL [Suspect]
     Indication: HEART AND LUNG TRANSPLANT

REACTIONS (14)
  - BACTERAEMIA [None]
  - BRAIN ABSCESS [None]
  - C-REACTIVE PROTEIN INCREASED [None]
  - CARDIAC MURMUR [None]
  - CARDIAC VALVE VEGETATION [None]
  - COMPLICATIONS OF TRANSPLANTED HEART [None]
  - ENDOCARDITIS ENTEROCOCCAL [None]
  - HEADACHE [None]
  - LEUKOCYTOSIS [None]
  - NIGHT SWEATS [None]
  - PAIN IN EXTREMITY [None]
  - RENAL INFARCT [None]
  - SKIN LESION [None]
  - SPLINTER HAEMORRHAGES [None]
